FAERS Safety Report 4372684-8 (Version None)
Quarter: 2004Q2

REPORT INFORMATION
  Report Type: 
  Country: None (occurrence: None)
  Receive Date: 20040608
  Receipt Date: 20040527
  Transmission Date: 20050107
  Serious: Yes (Hospitalization)
  Sender: FDA-Public Use
  Company Number: JP-JNJFOC-20040506163

PATIENT
  Sex: Male
  Weight: 62 kg

DRUGS (7)
  1. REMICADE [Suspect]
     Route: 041
     Dates: start: 20040304
  2. REMICADE [Suspect]
     Indication: RHEUMATOID ARTHRITIS
     Route: 041
     Dates: start: 20040304
  3. RHEUMATREX [Suspect]
     Indication: RHEUMATOID ARTHRITIS
     Route: 049
     Dates: start: 20020101
  4. INH [Concomitant]
     Indication: PROPHYLAXIS
     Route: 065
     Dates: start: 20040227
  5. PREDONINE [Concomitant]
     Indication: RHEUMATOID ARTHRITIS
     Route: 049
  6. CLINORIL [Concomitant]
     Indication: RHEUMATOID ARTHRITIS
     Route: 049
  7. FOLIAMIN [Concomitant]
     Route: 049

REACTIONS (5)
  - BACILLUS INFECTION [None]
  - BACTERAEMIA [None]
  - BILIARY TRACT INFECTION [None]
  - DRUG INTERACTION [None]
  - PYREXIA [None]
